FAERS Safety Report 9539045 (Version 2)
Quarter: 2013Q4

REPORT INFORMATION
  Report Type: Spontaneous
  Country: IT (occurrence: IT)
  Receive Date: 20130920
  Receipt Date: 20131022
  Transmission Date: 20140711
  Serious: Yes (Hospitalization)
  Sender: FDA-Public Use
  Company Number: IT-SANOFI-AVENTIS-2013SA090990

PATIENT
  Age: 70 Year
  Sex: Female

DRUGS (12)
  1. CLEXANE T [Suspect]
     Indication: THROMBOSIS
     Route: 058
     Dates: start: 20130820, end: 20130902
  2. LEVOXACIN [Suspect]
     Indication: DIABETIC FOOT
     Dosage: STRENGTH-500MG
     Route: 048
     Dates: start: 20130824, end: 20130829
  3. CONTRAMAL [Suspect]
     Indication: PAIN IN EXTREMITY
     Dosage: STRENGTH-150 MG
     Route: 048
     Dates: start: 20130825, end: 20130901
  4. BETADINE [Concomitant]
     Dosage: STRENGTH 10%
  5. CYMBALTA [Concomitant]
     Dosage: GASTRO RESISTANT HARD TABLET.
  6. FUROSEMIDE [Concomitant]
     Dosage: STRENGTH-25 MG
  7. PRITOR [Concomitant]
     Dosage: STRENGTH-80MG
  8. CARDURA [Concomitant]
  9. PANTOPRAZOLE [Concomitant]
  10. LANTUS SOLOSTAR [Concomitant]
  11. NOVORAPID [Concomitant]
  12. CLEXANE [Concomitant]
     Dates: end: 20130819

REACTIONS (1)
  - Hypersensitivity vasculitis [Recovering/Resolving]
